FAERS Safety Report 7073953-3 (Version None)
Quarter: 2010Q4

REPORT INFORMATION
  Report Type: 
  Country: None (occurrence: None)
  Receive Date: 20101029
  Receipt Date: 20101019
  Transmission Date: 20110411
  Serious: Yes (Hospitalization)
  Sender: FDA-Public Use
  Company Number: JP-SANOFI-AVENTIS-2010SA064474

PATIENT
  Age: 11 Year
  Sex: Male

DRUGS (45)
  1. TAKEPRON [Suspect]
     Indication: PRODUCT USED FOR UNKNOWN INDICATION
     Route: 048
     Dates: start: 20100628, end: 20100728
  2. LASIX [Suspect]
     Indication: PRODUCT USED FOR UNKNOWN INDICATION
     Route: 048
     Dates: start: 20100626, end: 20100706
  3. CERCINE [Suspect]
     Indication: PRODUCT USED FOR UNKNOWN INDICATION
     Route: 048
     Dates: start: 20100622, end: 20100701
  4. CERCINE [Suspect]
     Route: 048
     Dates: start: 20100702, end: 20100722
  5. MORPHINE [Suspect]
     Route: 041
     Dates: start: 20100621, end: 20100709
  6. GASTER [Suspect]
     Route: 041
     Dates: start: 20100617, end: 20100626
  7. GASTER [Suspect]
     Route: 048
     Dates: start: 20100626, end: 20100715
  8. CEFAZOLIN [Suspect]
     Route: 041
     Dates: start: 20100622, end: 20100624
  9. MIDAZOLAM [Suspect]
     Indication: PRODUCT USED FOR UNKNOWN INDICATION
     Route: 041
     Dates: start: 20100617, end: 20100709
  10. PHENOBAL [Suspect]
     Indication: PRODUCT USED FOR UNKNOWN INDICATION
     Route: 048
     Dates: start: 20100622, end: 20100709
  11. VICCILLIN [Suspect]
     Indication: PRODUCT USED FOR UNKNOWN INDICATION
     Route: 041
     Dates: start: 20100715, end: 20100716
  12. ROCEPHIN [Suspect]
     Indication: INFECTION
     Route: 041
     Dates: start: 20100630, end: 20100707
  13. BIOFERMIN [Suspect]
     Indication: PRODUCT USED FOR UNKNOWN INDICATION
     Route: 048
     Dates: start: 20100711, end: 20100718
  14. RISPERDAL [Suspect]
     Indication: PRODUCT USED FOR UNKNOWN INDICATION
     Route: 048
     Dates: start: 20100702, end: 20100714
  15. CALONAL [Suspect]
     Indication: PRODUCT USED FOR UNKNOWN INDICATION
     Route: 048
     Dates: start: 20100627, end: 20100716
  16. MIDAZOLAM [Suspect]
     Route: 041
     Dates: start: 20100621, end: 20100621
  17. CLINDAMYCIN [Suspect]
     Indication: PRODUCT USED FOR UNKNOWN INDICATION
     Route: 041
     Dates: start: 20100708, end: 20100710
  18. PIPERACILLIN SODIUM [Suspect]
     Indication: PRODUCT USED FOR UNKNOWN INDICATION
     Route: 041
     Dates: start: 20100715, end: 20100716
  19. BIOFERMIN [Suspect]
     Route: 048
     Dates: start: 20100711, end: 20100718
  20. ALDACTONE [Suspect]
     Route: 048
     Dates: start: 20100626, end: 20100706
  21. LACTOBACILLUS CASEI [Suspect]
     Indication: PRODUCT USED FOR UNKNOWN INDICATION
     Route: 048
     Dates: start: 20100702, end: 20100709
  22. DEPAS [Suspect]
     Indication: PRODUCT USED FOR UNKNOWN INDICATION
     Route: 048
     Dates: start: 20100701, end: 20100701
  23. TRICLORYL [Suspect]
     Indication: PRODUCT USED FOR UNKNOWN INDICATION
     Route: 048
     Dates: start: 20100628, end: 20100705
  24. LAXOBERON [Suspect]
     Indication: PRODUCT USED FOR UNKNOWN INDICATION
     Route: 048
     Dates: start: 20100620, end: 20100620
  25. OMEPRAZOLE [Suspect]
     Indication: PRODUCT USED FOR UNKNOWN INDICATION
     Route: 041
     Dates: start: 20100716, end: 20100721
  26. HEPARIN SODIUM [Suspect]
     Indication: PRODUCT USED FOR UNKNOWN INDICATION
     Route: 041
     Dates: start: 20100808, end: 20100812
  27. HEPARIN SODIUM [Suspect]
     Route: 041
     Dates: start: 20100617
  28. GLYCEOL [Suspect]
     Indication: PRODUCT USED FOR UNKNOWN INDICATION
     Route: 041
     Dates: start: 20100617, end: 20100618
  29. DEXAMETHASONE [Suspect]
     Indication: PRODUCT USED FOR UNKNOWN INDICATION
     Route: 041
     Dates: start: 20100617, end: 20100622
  30. ATROPINE SULFATE [Suspect]
     Indication: PRODUCT USED FOR UNKNOWN INDICATION
     Route: 041
     Dates: start: 20100617, end: 20100622
  31. EPINEPHRINE [Suspect]
     Route: 041
     Dates: start: 20100621, end: 20100621
  32. CALCICOL [Suspect]
     Indication: PRODUCT USED FOR UNKNOWN INDICATION
     Route: 041
     Dates: start: 20100621, end: 20100621
  33. FENTANYL CITRATE [Suspect]
     Indication: PRODUCT USED FOR UNKNOWN INDICATION
     Route: 041
     Dates: start: 20100621, end: 20100708
  34. ULTIVA [Suspect]
     Indication: PRODUCT USED FOR UNKNOWN INDICATION
     Route: 041
     Dates: start: 20100621, end: 20100708
  35. NICARPINE [Suspect]
     Indication: PRODUCT USED FOR UNKNOWN INDICATION
     Route: 041
     Dates: start: 20100622, end: 20100624
  36. PRECEDEX [Suspect]
     Indication: PRODUCT USED FOR UNKNOWN INDICATION
     Route: 041
     Dates: start: 20100704, end: 20100705
  37. ROCURONIUM BROMIDE [Suspect]
     Indication: PRODUCT USED FOR UNKNOWN INDICATION
     Route: 041
     Dates: start: 20100617, end: 20100706
  38. XYLOCAINE [Suspect]
     Indication: PRODUCT USED FOR UNKNOWN INDICATION
     Route: 041
     Dates: start: 20100621, end: 20100709
  39. PANTOL [Suspect]
     Indication: PRODUCT USED FOR UNKNOWN INDICATION
     Route: 041
     Dates: start: 20100604, end: 20100705
  40. ATARAX [Suspect]
     Indication: PRODUCT USED FOR UNKNOWN INDICATION
     Route: 041
     Dates: start: 20100709, end: 20100709
  41. ANHIBA [Suspect]
     Route: 054
     Dates: start: 20100630, end: 20100716
  42. FLURBIPROFEN [Suspect]
     Indication: PRODUCT USED FOR UNKNOWN INDICATION
     Route: 041
     Dates: start: 20100709, end: 20100709
  43. OFLOXACIN [Suspect]
     Indication: PRODUCT USED FOR UNKNOWN INDICATION
     Route: 047
     Dates: start: 20100728, end: 20100729
  44. HYALEIN [Suspect]
     Indication: PRODUCT USED FOR UNKNOWN INDICATION
     Route: 047
     Dates: start: 20100723, end: 20100821
  45. GLYCERIN [Suspect]
     Indication: CONSTIPATION
     Route: 054
     Dates: start: 20100621

REACTIONS (1)
  - DRUG RASH WITH EOSINOPHILIA AND SYSTEMIC SYMPTOMS [None]
